FAERS Safety Report 6140959-8 (Version None)
Quarter: 2009Q2

REPORT INFORMATION
  Report Type: 
  Country: None (occurrence: None)
  Receive Date: 20090401
  Receipt Date: 20090401
  Transmission Date: 20091009
  Serious: Yes (Hospitalization)
  Sender: FDA-Public Use
  Company Number: None

PATIENT
  Sex: Male
  Weight: 53 kg

DRUGS (1)
  1. CISPLATIN [Suspect]
     Dosage: 170 MG
     Dates: end: 20090311

REACTIONS (2)
  - CATHETER RELATED INFECTION [None]
  - FEBRILE NEUTROPENIA [None]
